FAERS Safety Report 9974866 (Version 1)
Quarter: 2014Q1

REPORT INFORMATION
  Report Type: Report from Study
  Country: US (occurrence: US)
  Receive Date: 20140306
  Receipt Date: 20140306
  Transmission Date: 20141002
  Serious: No
  Sender: FDA-Public Use
  Company Number: US-ABBVIE-13P-163-1155117-00

PATIENT
  Age: 28 Year
  Sex: Male

DRUGS (7)
  1. HUMIRA [Suspect]
     Indication: PSORIASIS
     Dates: start: 20130910, end: 20130910
  2. HUMIRA [Suspect]
     Dates: start: 20130917, end: 20130917
  3. HUMIRA [Suspect]
     Dates: start: 20131001
  4. FLUOXETINE [Concomitant]
     Indication: DEPRESSION
  5. FLUOXETINE [Concomitant]
     Indication: ANXIETY
  6. CLARITIN [Concomitant]
     Indication: HYPERSENSITIVITY
     Dosage: 10 MG DAILY
  7. LORAZEPAM [Concomitant]
     Indication: ANXIETY

REACTIONS (1)
  - Injection site haemorrhage [Recovered/Resolved]
